FAERS Safety Report 9476020 (Version 3)
Quarter: 2015Q3

REPORT INFORMATION
  Report Type: Spontaneous
  Country: BR (occurrence: BR)
  Receive Date: 20130826
  Receipt Date: 20150710
  Transmission Date: 20151125
  Serious: Yes (Hospitalization, Other)
  Sender: FDA-Public Use
  Company Number: BR-PFIZER INC-2013217024

PATIENT
  Sex: Female
  Weight: 2 kg

DRUGS (3)
  1. SOMAVERT [Suspect]
     Active Substance: PEGVISOMANT
     Indication: ACROMEGALY
     Dosage: 10 MG, 1X/DAY
     Route: 064
     Dates: start: 2009, end: 2010
  2. METICORTEN [Concomitant]
     Active Substance: PREDNISONE
     Indication: ADRENAL INSUFFICIENCY
     Dosage: 2.5 MG, 1X/DAY
     Dates: start: 2009
  3. SOMAVERT [Suspect]
     Active Substance: PEGVISOMANT
     Dosage: 10MG 1X/DAY IN ONE DAY AND 10MG 2X/DAY THE FOLLOWING DAY, ALTERNATE DAYS
     Route: 064
     Dates: start: 2010, end: 201110

REACTIONS (3)
  - Foetal distress syndrome [Unknown]
  - Maternal exposure during pregnancy [Unknown]
  - Premature baby [Unknown]
